FAERS Safety Report 8281706-3 (Version None)
Quarter: 2012Q2

REPORT INFORMATION
  Report Type: 
  Country: None (occurrence: None)
  Receive Date: 20120413
  Receipt Date: 20120411
  Transmission Date: 20120825
  Serious: Yes (Other)
  Sender: FDA-Public Use
  Company Number: US-PFIZER INC-2011209385

PATIENT
  Sex: Female
  Weight: 79.3 kg

DRUGS (5)
  1. LISINOPRIL [Concomitant]
     Indication: HYPERTENSION
     Dosage: UNK
  2. FOLIC ACID [Concomitant]
     Dosage: UNK
  3. CELEBREX [Suspect]
     Dosage: 200 MG, 1X/DAY
     Route: 048
     Dates: start: 20111101
  4. CELEBREX [Suspect]
     Indication: RHEUMATOID ARTHRITIS
     Dosage: 200 MG, 1X/DAY
     Route: 048
     Dates: start: 20111101
  5. METHOTREXATE [Concomitant]
     Indication: RHEUMATOID ARTHRITIS
     Dosage: UNK

REACTIONS (9)
  - RED BLOOD CELL SEDIMENTATION RATE DECREASED [None]
  - FINGER DEFORMITY [None]
  - HYPOKINESIA [None]
  - THERAPEUTIC RESPONSE UNEXPECTED [None]
  - INFLAMMATION [None]
  - RED BLOOD CELL SEDIMENTATION RATE ABNORMAL [None]
  - PAIN [None]
  - DRUG EFFECT DECREASED [None]
  - ENERGY INCREASED [None]
